FAERS Safety Report 5992762-7 (Version None)
Quarter: 2008Q4

REPORT INFORMATION
  Report Type: 
  Country: None (occurrence: None)
  Receive Date: 20081211
  Receipt Date: 20080529
  Transmission Date: 20090506
  Serious: No
  Sender: FDA-Public Use
  Company Number: US-AMGEN-KDL283375

PATIENT
  Sex: Female

DRUGS (2)
  1. ENBREL [Suspect]
     Indication: RHEUMATOID ARTHRITIS
     Route: 058
     Dates: start: 20011201
  2. PLAQUENIL [Concomitant]

REACTIONS (10)
  - BRONCHITIS [None]
  - DYSGEUSIA [None]
  - DYSPHONIA [None]
  - HAEMORRHOIDS [None]
  - HYPERMETROPIA [None]
  - INTESTINAL POLYP [None]
  - RASH [None]
  - RHEUMATOID ARTHRITIS [None]
  - UPPER RESPIRATORY TRACT INFECTION [None]
  - URINARY TRACT INFECTION [None]
